FAERS Safety Report 19993599 (Version 1)
Quarter: 2021Q4

REPORT INFORMATION
  Report Type: Spontaneous
  Country: GB (occurrence: GB)
  Receive Date: 20211025
  Receipt Date: 20211025
  Transmission Date: 20220303
  Serious: Yes (Other)
  Sender: FDA-Public Use
  Company Number: None

PATIENT
  Age: 21 Year
  Sex: Female
  Weight: 109.76 kg

DRUGS (2)
  1. SCOPOLAMINE HYDROBROMIDE [Suspect]
     Active Substance: SCOPOLAMINE HYDROBROMIDE
     Indication: Ill-defined disorder
     Dosage: 600 ?G
     Route: 048
     Dates: start: 20211023, end: 20211023
  2. CODEINE PHOSPHATE [Concomitant]
     Active Substance: CODEINE PHOSPHATE
     Indication: Ill-defined disorder
     Dosage: UNK

REACTIONS (8)
  - Adverse drug reaction [Recovering/Resolving]
  - Adverse drug reaction [Recovering/Resolving]
  - Eye irritation [Recovering/Resolving]
  - Eye pain [Recovering/Resolving]
  - Pyrexia [Recovering/Resolving]
  - Eyelids pruritus [Recovering/Resolving]
  - Adverse drug reaction [Recovering/Resolving]
  - Fatigue [Recovered/Resolved]
